FAERS Safety Report 25802142 (Version 2)
Quarter: 2025Q3

REPORT INFORMATION
  Report Type: Spontaneous
  Country: US (occurrence: US)
  Receive Date: 20250915
  Receipt Date: 20250925
  Transmission Date: 20251020
  Serious: Yes (Hospitalization, Other)
  Sender: AUROBINDO
  Company Number: US-MLMSERVICE-20250825-PI624990-00327-1

PATIENT
  Age: 83 Year
  Sex: Female

DRUGS (8)
  1. DIVALPROEX SODIUM [Suspect]
     Active Substance: DIVALPROEX SODIUM
     Indication: Behaviour disorder
     Dosage: 250 MILLIGRAM, TWO TIMES A DAY
     Route: 065
  2. DONEPEZIL [Suspect]
     Active Substance: DONEPEZIL
     Indication: Memory impairment
     Route: 065
  3. CITALOPRAM [Suspect]
     Active Substance: CITALOPRAM
     Indication: Depression
     Route: 065
  4. CITALOPRAM [Suspect]
     Active Substance: CITALOPRAM
     Indication: Anxiety
  5. TRAZODONE [Suspect]
     Active Substance: TRAZODONE HYDROCHLORIDE
     Indication: Insomnia
     Dosage: AT BEDTIME
     Route: 065
  6. TRAZODONE [Suspect]
     Active Substance: TRAZODONE HYDROCHLORIDE
     Route: 065
  7. RISPERIDONE [Suspect]
     Active Substance: RISPERIDONE
     Indication: Behaviour disorder
     Dosage: 1 MILLIGRAM, TWO TIMES A DAY
     Route: 048
  8. BUSPIRONE HYDROCHLORIDE [Suspect]
     Active Substance: BUSPIRONE HYDROCHLORIDE
     Indication: Behaviour disorder
     Route: 065

REACTIONS (3)
  - Delirium [Recovering/Resolving]
  - Anticonvulsant drug level increased [Recovering/Resolving]
  - Hyperammonaemia [Recovering/Resolving]
